FAERS Safety Report 7717306 (Version 6)
Quarter: 2013Q1

REPORT INFORMATION
  Report Type: Report from Study
  Country: JP (occurrence: JP)
  Receive Date: 20101217
  Receipt Date: 20130110
  Transmission Date: 20140127
  Serious: Yes (Death, Hospitalization, Other)
  Sender: FDA-Public Use
  Company Number: JP-ROCHE-739940

PATIENT
  Age: 71 None
  Sex: Female
  Weight: 43 kg

DRUGS (32)
  1. BEVACIZUMAB [Suspect]
     Indication: COLON CANCER RECURRENT
     Route: 041
  2. BEVACIZUMAB [Suspect]
     Route: 041
     Dates: start: 20091111, end: 2010
  3. BEVACIZUMAB [Suspect]
     Route: 041
     Dates: start: 20100811, end: 20101119
  4. BEVACIZUMAB [Suspect]
     Route: 041
     Dates: start: 20101215, end: 20101215
  5. IRINOTECAN HYDROCHLORIDE [Suspect]
     Indication: COLON CANCER
     Dosage: REPORTED AS: CAMPTO(IRINOTECAN HYDROCHLORIDE)
     Route: 041
     Dates: start: 20100811, end: 20101119
  6. IRINOTECAN HYDROCHLORIDE [Suspect]
     Route: 041
     Dates: start: 20101215, end: 20101215
  7. FLUOROURACIL [Suspect]
     Indication: COLON CANCER RECURRENT
     Route: 041
  8. FLUOROURACIL [Suspect]
     Dosage: ROUTE:INTRAVENOUS BOLUS
     Route: 040
  9. FLUOROURACIL [Suspect]
     Dosage: INTRAVENOUS BOLUS
     Route: 041
     Dates: start: 20091111, end: 2010
  10. FLUOROURACIL [Suspect]
     Route: 041
     Dates: start: 20091111, end: 2010
  11. FLUOROURACIL [Suspect]
     Dosage: ROUTE: INTRAVENOUS BOLUS
     Route: 041
     Dates: start: 20100811, end: 20101119
  12. FLUOROURACIL [Suspect]
     Dosage: ROUTE:INTRAVENOUS DRIP
     Route: 041
     Dates: start: 20100811, end: 20101121
  13. FLUOROURACIL [Suspect]
     Route: 041
     Dates: start: 20101215, end: 20101215
  14. FLUOROURACIL [Suspect]
     Route: 041
     Dates: start: 20101215, end: 20101217
  15. LEVOLEUCOVORIN CALCIUM [Suspect]
     Indication: COLON CANCER RECURRENT
     Route: 041
  16. LEVOLEUCOVORIN CALCIUM [Suspect]
     Route: 041
     Dates: start: 20091111, end: 2010
  17. LEVOLEUCOVORIN CALCIUM [Suspect]
     Dosage: REPORTED AS: LEVOFOLINATE(LEVOFOLINATE CALCIUM)
     Route: 041
     Dates: start: 20100811, end: 20101119
  18. LEVOLEUCOVORIN CALCIUM [Suspect]
     Route: 041
     Dates: start: 20101215, end: 20101215
  19. MAGNESIUM OXIDE [Concomitant]
     Indication: COLON CANCER
     Route: 048
  20. DAI-KENCHU-TO [Concomitant]
     Dosage: REPORTED AS:DAI-KENCHU-TO(DAI-KENCHU-TO), FORM: GRANULATED POWDER
     Route: 048
  21. PYRIDOXAL PHOSPHATE [Concomitant]
     Dosage: REPORTED AS:PYDOXAL TAB(PYRIDOXAL PHOSPHATE
     Route: 048
  22. SELBEX [Concomitant]
     Dosage: REPORTED AS : SELBEX (TEPRENONE)
     Route: 048
  23. TAKEPRON [Concomitant]
     Route: 048
  24. VOLTAREN [Concomitant]
     Route: 048
  25. GABAPEN [Concomitant]
     Route: 048
  26. HACHIAZULE [Concomitant]
     Dosage: OROPHARINGEAL
     Route: 050
  27. MOHRUS [Concomitant]
     Dosage: PROPERLY
     Route: 062
  28. TEPRENONE [Concomitant]
     Route: 048
  29. DICLOFENAC [Concomitant]
     Route: 048
  30. OXYCONTIN [Concomitant]
     Route: 048
  31. LAC-B [Concomitant]
     Route: 048
  32. ELPLAT [Concomitant]
     Indication: COLON CANCER RECURRENT
     Route: 042
     Dates: start: 20090710, end: 20100721

REACTIONS (12)
  - Sepsis [Recovered/Resolved]
  - Urinary tract infection [Recovered/Resolved]
  - Diarrhoea [Recovering/Resolving]
  - Dehydration [Unknown]
  - Intestinal perforation [Recovered/Resolved]
  - Spinal compression fracture [Unknown]
  - Abdominal infection [Unknown]
  - Peritonitis [Unknown]
  - Back pain [Unknown]
  - Nausea [Unknown]
  - Disease progression [Fatal]
  - Large intestine perforation [Unknown]
